FAERS Safety Report 7468414-3 (Version None)
Quarter: 2011Q2

REPORT INFORMATION
  Report Type: 
  Country: None (occurrence: None)
  Receive Date: 20110509
  Receipt Date: 20110503
  Transmission Date: 20111010
  Serious: Yes (Other)
  Sender: FDA-Public Use
  Company Number: TR-PFIZER INC-2011095032

PATIENT
  Age: 46 Year
  Sex: Male

DRUGS (1)
  1. METHYLPREDNISOLONE [Suspect]
     Indication: OPTIC NEURITIS
     Dosage: HIGH DOSE 1000 MG/DAY

REACTIONS (1)
  - PSYCHOTIC DISORDER [None]
